FAERS Safety Report 5616380-5 (Version None)
Quarter: 2008Q1

REPORT INFORMATION
  Report Type: 
  Country: None (occurrence: None)
  Receive Date: 20080205
  Receipt Date: 20080205
  Transmission Date: 20080703
  Serious: Yes (Other)
  Sender: FDA-Public Use
  Company Number: None

PATIENT
  Sex: Female
  Weight: 107.5025 kg

DRUGS (1)
  1. KEFLEX [Suspect]
     Dosage: 1ST TIME DOSE

REACTIONS (5)
  - DYSPNOEA [None]
  - RASH [None]
  - SWELLING [None]
  - SWELLING FACE [None]
  - URTICARIA [None]
